FAERS Safety Report 11751362 (Version 2)
Quarter: 2015Q4

REPORT INFORMATION
  Report Type: Report from Study
  Country: IL (occurrence: IL)
  Receive Date: 20151118
  Receipt Date: 20151211
  Transmission Date: 20160304
  Serious: Yes (Death, Other)
  Sender: FDA-Public Use
  Company Number: IL-ABBVIE-15P-082-1502119-00

PATIENT
  Age: 76 Year
  Sex: Male

DRUGS (1)
  1. DUODOPA [Suspect]
     Active Substance: CARBIDOPA\LEVODOPA
     Indication: PARKINSON^S DISEASE
     Route: 050
     Dates: start: 20110820

REACTIONS (5)
  - Loss of consciousness [Unknown]
  - Multi-organ failure [Unknown]
  - Pneumonia [Unknown]
  - Bacterial infection [Fatal]
  - White blood cell count increased [Unknown]

NARRATIVE: CASE EVENT DATE: 201510
